FAERS Safety Report 17649578 (Version 1)
Quarter: 2020Q2

REPORT INFORMATION
  Report Type: Spontaneous
  Country: US (occurrence: US)
  Receive Date: 20200408
  Receipt Date: 20200408
  Transmission Date: 20200713
  Serious: No
  Sender: FDA-Public Use
  Company Number: US-NOVOPROD-709636

PATIENT
  Age: 63 Year
  Sex: Female

DRUGS (2)
  1. RYBELSUS [Suspect]
     Active Substance: SEMAGLUTIDE
     Indication: DIABETES MELLITUS
     Dosage: 14 MG, QD
     Route: 058
     Dates: start: 20191202, end: 20191208
  2. RYBELSUS [Suspect]
     Active Substance: SEMAGLUTIDE
     Dosage: 3 MG, QD
     Route: 058
     Dates: start: 20191209, end: 20191211

REACTIONS (12)
  - Headache [Recovering/Resolving]
  - Disturbance in attention [Recovering/Resolving]
  - Feeling jittery [Recovering/Resolving]
  - Memory impairment [Recovering/Resolving]
  - Heart rate increased [Recovering/Resolving]
  - Muscular weakness [Recovering/Resolving]
  - Abdominal pain [Recovering/Resolving]
  - Inappropriate schedule of product administration [Recovered/Resolved]
  - Pain in extremity [Not Recovered/Not Resolved]
  - Neuropathy peripheral [Recovering/Resolving]
  - Condition aggravated [Not Recovered/Not Resolved]
  - Depression [Recovering/Resolving]

NARRATIVE: CASE EVENT DATE: 201912
